FAERS Safety Report 25263351 (Version 1)
Quarter: 2025Q2

REPORT INFORMATION
  Report Type: Report from Study
  Country: CA (occurrence: CA)
  Receive Date: 20250502
  Receipt Date: 20250502
  Transmission Date: 20250717
  Serious: Yes (Death, Other)
  Sender: TAKEDA
  Company Number: CA-TAKEDA-2025TUS022650

PATIENT
  Age: 59 Year
  Sex: Male

DRUGS (5)
  1. FRUQUINTINIB [Suspect]
     Active Substance: FRUQUINTINIB
     Indication: Colorectal cancer metastatic
  2. FRUQUINTINIB [Suspect]
     Active Substance: FRUQUINTINIB
  3. TAMSULOSIN [Concomitant]
     Active Substance: TAMSULOSIN
  4. PREGABALIN [Concomitant]
     Active Substance: PREGABALIN
  5. DEXAMETHASONE [Concomitant]
     Active Substance: DEXAMETHASONE

REACTIONS (3)
  - Death [Fatal]
  - Oral mucosal eruption [Unknown]
  - Rash [Unknown]

NARRATIVE: CASE EVENT DATE: 20250204
